FAERS Safety Report 6453273-8 (Version None)
Quarter: 2009Q4

REPORT INFORMATION
  Report Type: 
  Country: None (occurrence: None)
  Receive Date: 20091124
  Receipt Date: 20091113
  Transmission Date: 20100525
  Serious: Yes (Hospitalization, Other)
  Sender: FDA-Public Use
  Company Number: US-AMGEN-QUU374662

PATIENT
  Sex: Male

DRUGS (2)
  1. ENBREL [Suspect]
     Indication: PSORIATIC ARTHROPATHY
     Route: 058
     Dates: start: 20060101
  2. ENBREL [Suspect]
     Indication: PSORIASIS

REACTIONS (7)
  - BACK PAIN [None]
  - BACTERIAL INFECTION [None]
  - COMA [None]
  - CONTUSION [None]
  - RECTAL HAEMORRHAGE [None]
  - THERAPEUTIC RESPONSE DECREASED [None]
  - WEIGHT DECREASED [None]
